FAERS Safety Report 16084019 (Version 2)
Quarter: 2019Q1

REPORT INFORMATION
  Report Type: Spontaneous
  Country: BR (occurrence: BR)
  Receive Date: 20190318
  Receipt Date: 20190320
  Transmission Date: 20190418
  Serious: Yes (Hospitalization, Other)
  Sender: FDA-Public Use
  Company Number: BR-ABBVIE-19P-020-2707250-00

PATIENT
  Sex: Female
  Weight: 91 kg

DRUGS (11)
  1. DEPAKENE [Suspect]
     Active Substance: VALPROIC ACID
     Route: 050
  2. PHENYTOIN. [Concomitant]
     Active Substance: PHENYTOIN
     Indication: AGITATION
  3. LAMOTRIGINE. [Concomitant]
     Active Substance: LAMOTRIGINE
     Indication: AGITATION
  4. LACTULONA [Concomitant]
     Indication: BOWEL MOVEMENT IRREGULARITY
  5. LACTULONA [Concomitant]
     Indication: DEFAECATION DISORDER
     Route: 065
     Dates: start: 20180919
  6. DEPAKENE [Suspect]
     Active Substance: VALPROIC ACID
     Route: 050
     Dates: start: 20180919
  7. RANITIDINE. [Concomitant]
     Active Substance: RANITIDINE
     Indication: SEIZURE
     Route: 065
     Dates: start: 20180919
  8. DEPAKENE [Suspect]
     Active Substance: VALPROIC ACID
     Indication: ILL-DEFINED DISORDER
     Dosage: 10ML MORNING - 5ML AFTERNOON- 10ML AT NIGHT;
     Route: 065
  9. LAMOTRIGINE. [Concomitant]
     Active Substance: LAMOTRIGINE
     Indication: SEIZURE
     Route: 065
     Dates: start: 20180919
  10. PHENYTOIN. [Concomitant]
     Active Substance: PHENYTOIN
     Indication: SEIZURE
     Route: 065
     Dates: start: 20180919
  11. RANITIDINE. [Concomitant]
     Active Substance: RANITIDINE
     Indication: AGITATION

REACTIONS (12)
  - Immobile [Unknown]
  - Pneumonia [Unknown]
  - Unevaluable event [Unknown]
  - Parenteral nutrition [Unknown]
  - Seizure [Unknown]
  - Pain [Unknown]
  - Urinary tract infection [Unknown]
  - Aspiration [Unknown]
  - Ammonia abnormal [Unknown]
  - Bedridden [Unknown]
  - Incorrect route of product administration [Unknown]
  - Speech disorder [Unknown]
